FAERS Safety Report 9857067 (Version 1)
Quarter: 2014Q1

REPORT INFORMATION
  Report Type: Spontaneous
  Country: IE (occurrence: IE)
  Receive Date: 20140130
  Receipt Date: 20140130
  Transmission Date: 20141002
  Serious: Yes (Other)
  Sender: FDA-Public Use
  Company Number: US-ASTRAZENECA-2014SE06119

PATIENT
  Age: 196 Day
  Sex: Male

DRUGS (6)
  1. PALIVIZUMAB [Suspect]
     Indication: LUNG DISORDER
     Dosage: 15 MG/KG MONTHLY / 100 MG
     Route: 030
     Dates: start: 20131029
  2. PALIVIZUMAB [Suspect]
     Indication: PREMATURE BABY
     Dosage: 15 MG/KG MONTHLY / 100 MG
     Route: 030
     Dates: start: 20131029
  3. PALIVIZUMAB [Suspect]
     Indication: LUNG DISORDER
     Dosage: 15 MG/KG MONTHLY / 50 MG
     Route: 030
  4. PALIVIZUMAB [Suspect]
     Indication: PREMATURE BABY
     Dosage: 15 MG/KG MONTHLY / 50 MG
     Route: 030
  5. FER N SOL [Concomitant]
     Indication: PRODUCT USED FOR UNKNOWN INDICATION
     Dosage: UNKNOWN
     Route: 065
  6. ABIDEC [Concomitant]
     Indication: PRODUCT USED FOR UNKNOWN INDICATION
     Dosage: UNKNOWN
     Route: 065

REACTIONS (4)
  - Bronchiolitis [Recovered/Resolved]
  - Wheezing [Recovered/Resolved]
  - Cough [Recovered/Resolved]
  - Vomiting [Recovered/Resolved]
